FAERS Safety Report 16173702 (Version 1)
Quarter: 2019Q2

REPORT INFORMATION
  Report Type: Spontaneous
  Country: US (occurrence: US)
  Receive Date: 20190408
  Receipt Date: 20190408
  Transmission Date: 20190711
  Serious: Yes (Hospitalization)
  Sender: FDA-Public Use
  Company Number: None

PATIENT
  Sex: Female

DRUGS (7)
  1. CALCIUM D [Concomitant]
     Active Substance: CALCIUM\VITAMIN D
  2. EXEMESTANE. [Concomitant]
     Active Substance: EXEMESTANE
  3. AFINITOR [Suspect]
     Active Substance: EVEROLIMUS
     Indication: METASTASES TO LIVER
     Dosage: ?          OTHER FREQUENCY:QD28/28DCHEMOCYCLE;??
     Route: 048
     Dates: start: 20190226
  4. AFINITOR [Suspect]
     Active Substance: EVEROLIMUS
     Indication: BILE DUCT CANCER
     Dosage: ?          OTHER FREQUENCY:QD28/28DCHEMOCYCLE;??
     Route: 048
     Dates: start: 20190226
  5. LORAZEPAM. [Concomitant]
     Active Substance: LORAZEPAM
  6. IBRANCE [Concomitant]
     Active Substance: PALBOCICLIB
  7. MULTI-VITAMIN [Concomitant]
     Active Substance: .ALPHA.-TOCOPHEROL ACETATE, DL-\ASCORBIC ACID\CYANOCOBALAMIN\FLUORIDE ION\FOLIC ACID\NIACIN\PYRIDOXINE\RIBOFLAVIN\THIAMINE\VITAMIN A\VITAMIN D

REACTIONS (3)
  - Toxicity to various agents [None]
  - Hypophagia [None]
  - Stomatitis [None]
